FAERS Safety Report 13896590 (Version 1)
Quarter: 2017Q3

REPORT INFORMATION
  Report Type: Spontaneous
  Country: US (occurrence: US)
  Receive Date: 20170821
  Receipt Date: 20170821
  Transmission Date: 20171127
  Serious: Yes (Life-Threatening, Other)
  Sender: FDA-Public Use
  Company Number: None

PATIENT
  Age: 25 Year
  Sex: Female
  Weight: 40.5 kg

DRUGS (14)
  1. CLOZAPINE, GENERIC FOR CLOZAPINE [Suspect]
     Active Substance: CLOZAPINE
     Indication: SUICIDAL IDEATION
     Dosage: ?          QUANTITY:2 TABLET(S);?
     Route: 048
  2. IODINE. [Concomitant]
     Active Substance: IODINE
  3. GABAPENTIN. [Concomitant]
     Active Substance: GABAPENTIN
  4. REQUIP [Concomitant]
     Active Substance: ROPINIROLE HYDROCHLORIDE
  5. ZOFRAN [Concomitant]
     Active Substance: ONDANSETRON HYDROCHLORIDE
  6. VITAMIN D [Concomitant]
     Active Substance: CHOLECALCIFEROL
  7. STRESS 4 WAY SUPPORT SYSTEM [Concomitant]
  8. LITHIUM. [Concomitant]
     Active Substance: LITHIUM
  9. BENADRYL [Concomitant]
     Active Substance: DIPHENHYDRAMINE HYDROCHLORIDE
  10. KLONOPIN [Concomitant]
     Active Substance: CLONAZEPAM
  11. CALM ESSENCE [Concomitant]
  12. LUMONOL [Concomitant]
  13. SAPHRIS [Concomitant]
     Active Substance: ASENAPINE MALEATE
  14. ZANTAC [Concomitant]
     Active Substance: RANITIDINE HYDROCHLORIDE

REACTIONS (4)
  - Job dissatisfaction [None]
  - Thinking abnormal [None]
  - Feeling abnormal [None]
  - Product substitution issue [None]

NARRATIVE: CASE EVENT DATE: 20170724
